FAERS Safety Report 6104755-X (Version None)
Quarter: 2009Q1

REPORT INFORMATION
  Report Type: 
  Country: None (occurrence: None)
  Receive Date: 20090304
  Receipt Date: 20090304
  Transmission Date: 20090719
  Serious: Yes (Death, Hospitalization, Disabling)
  Sender: FDA-Public Use
  Company Number: None

PATIENT
  Age: 62 Year
  Sex: Female
  Weight: 78.6 kg

DRUGS (12)
  1. MYCOPHENOLATE MOFETIL [Suspect]
     Indication: SYSTEMIC LUPUS ERYTHEMATOSUS
     Dosage: 1000 MG TWICE DAILY PO
     Route: 048
     Dates: start: 20080301, end: 20080801
  2. PREDNISONE [Concomitant]
  3. COROG [Concomitant]
  4. PLAVIX [Concomitant]
  5. PROVACHOL [Concomitant]
  6. FOLATE [Concomitant]
  7. OMEPRAZOLE [Concomitant]
  8. LEXAPRO [Concomitant]
  9. ATIVAN [Concomitant]
  10. XALATAN [Concomitant]
  11. SEROQUEL [Concomitant]
  12. CITRACAL + D [Concomitant]

REACTIONS (8)
  - CONDITION AGGRAVATED [None]
  - CSF CULTURE POSITIVE [None]
  - DEPRESSION [None]
  - DYSARTHRIA [None]
  - FEMUR FRACTURE [None]
  - JC VIRUS INFECTION [None]
  - PARANOIA [None]
  - PROGRESSIVE MULTIFOCAL LEUKOENCEPHALOPATHY [None]
